FAERS Safety Report 4296635-X (Version None)
Quarter: 2004Q1

REPORT INFORMATION
  Report Type: 
  Country: None (occurrence: None)
  Receive Date: 20040126
  Receipt Date: 20030829
  Transmission Date: 20041129
  Serious: No
  Sender: FDA-Public Use
  Company Number: USA030845815

PATIENT
  Age: 44 Year
  Sex: Male
  Weight: 107 kg

DRUGS (6)
  1. STRATTERA [Suspect]
     Indication: ATTENTION DEFICIT/HYPERACTIVITY DISORDER
     Dosage: 80 MG/DAY
     Dates: start: 20030703
  2. GLUCOTROL [Concomitant]
  3. AVANDIA [Concomitant]
  4. TRICOR [Concomitant]
  5. ZESTRIL [Concomitant]
  6. HYDROCHLOROTHIAZIDE [Concomitant]

REACTIONS (4)
  - BLOOD GLUCOSE DECREASED [None]
  - GLYCOSYLATED HAEMOGLOBIN DECREASED [None]
  - HYPERHIDROSIS [None]
  - PARAESTHESIA [None]
